FAERS Safety Report 7097660-6 (Version None)
Quarter: 2010Q4

REPORT INFORMATION
  Report Type: 
  Country: None (occurrence: None)
  Receive Date: 20101112
  Receipt Date: 20101103
  Transmission Date: 20110411
  Serious: Yes (Hospitalization)
  Sender: FDA-Public Use
  Company Number: US-BIOGENIDEC-2010BI038751

PATIENT
  Age: 51 Year
  Sex: Female

DRUGS (2)
  1. AVONEX [Suspect]
     Indication: MULTIPLE SCLEROSIS
     Route: 030
     Dates: start: 19991215, end: 20020201
  2. AVONEX [Suspect]
     Route: 030
     Dates: start: 20030118

REACTIONS (2)
  - OPTIC NEURITIS [None]
  - SENSATION OF HEAVINESS [None]
